FAERS Safety Report 19377072 (Version 1)
Quarter: 2021Q2

REPORT INFORMATION
  Report Type: Spontaneous
  Country: US (occurrence: US)
  Receive Date: 20210604
  Receipt Date: 20210604
  Transmission Date: 20210717
  Serious: No
  Sender: FDA-Public Use
  Company Number: US-PERRIGO-21US003538

PATIENT
  Age: 68 Year
  Sex: Female

DRUGS (2)
  1. DICLOFENAC SODIUM. [Suspect]
     Active Substance: DICLOFENAC SODIUM
     Indication: BACK PAIN
     Dosage: UNKNOWN, PRN TO KNEES AND KNUCKLES
     Route: 061
     Dates: start: 2020
  2. DICLOFENAC SODIUM. [Suspect]
     Active Substance: DICLOFENAC SODIUM
     Indication: OSTEOARTHRITIS
     Dosage: UNKNOWN, SINGLE TO BACK
     Route: 061
     Dates: start: 202102, end: 202102

REACTIONS (3)
  - Wrong technique in product usage process [Recovered/Resolved]
  - Off label use [Recovered/Resolved]
  - Product administered at inappropriate site [Recovered/Resolved]

NARRATIVE: CASE EVENT DATE: 202102
